FAERS Safety Report 8967801 (Version 1)
Quarter: 2012Q4

REPORT INFORMATION
  Report Type: Spontaneous
  Country: GB (occurrence: None)
  Receive Date: 20121207
  Receipt Date: 20121207
  Transmission Date: 20130627
  Serious: Yes (Disabling)
  Sender: FDA-Public Use
  Company Number: GER/UKI/12/0026919

PATIENT
  Age: 23 Year
  Sex: Female
  Weight: 60 kg

DRUGS (9)
  1. SERTRALINE (SERTRALINE) (SERTRALINE) [Suspect]
     Indication: DEPRESSION
     Route: 048
     Dates: start: 2008, end: 20121005
  2. SERTRALINE (SERTRALINE) (SERTRALINE) [Suspect]
     Indication: ANXIETY
     Route: 048
     Dates: start: 2008, end: 20121005
  3. DEPO PROVERA (MEDROXYPROGESTERONE ACETATE) [Concomitant]
  4. LEVOTHYROXINE [Concomitant]
  5. MIRTAZAPINE [Concomitant]
  6. PIPAMPERONE [Concomitant]
  7. PROMETHAZINE [Concomitant]
  8. RISPERIDONE [Concomitant]
  9. VENLAFAXINE [Concomitant]

REACTIONS (1)
  - Tic [None]
